FAERS Safety Report 6817715-8 (Version None)
Quarter: 2010Q3

REPORT INFORMATION
  Report Type: 
  Country: None (occurrence: None)
  Receive Date: 20100706
  Receipt Date: 20100625
  Transmission Date: 20110219
  Serious: Yes (Life-Threatening)
  Sender: FDA-Public Use
  Company Number: JP-PFIZER INC-2010074394

PATIENT
  Age: 67 Year
  Sex: Male
  Weight: 59.6 kg

DRUGS (1)
  1. SULPERAZON [Suspect]
     Indication: CHOLANGITIS
     Dosage: 1 G, 1X/DAY
     Route: 041
     Dates: start: 20100415, end: 20100415

REACTIONS (1)
  - ANAPHYLACTIC SHOCK [None]
